FAERS Safety Report 18908836 (Version 1)
Quarter: 2021Q1

REPORT INFORMATION
  Report Type: Spontaneous
  Country: US (occurrence: US)
  Receive Date: 20210218
  Receipt Date: 20210218
  Transmission Date: 20210420
  Serious: Yes (Other)
  Sender: FDA-Public Use
  Company Number: US-COLGATE PALMOLIVE COMPANY-20210200308

PATIENT
  Age: 56 Year
  Sex: Female

DRUGS (1)
  1. PEROXYL MOUTH SORE MILD MINT [Suspect]
     Active Substance: HYDROGEN PEROXIDE
     Indication: DENTAL EXAMINATION
     Dosage: 1 CAPFUL AND ONLY ONCE
     Route: 048
     Dates: start: 20210204, end: 20210204

REACTIONS (8)
  - Dysphagia [Recovering/Resolving]
  - Feeding disorder [Recovering/Resolving]
  - Dyspnoea [Recovering/Resolving]
  - Lymphadenopathy [Recovering/Resolving]
  - Throat irritation [Recovering/Resolving]
  - Accidental exposure to product [Recovering/Resolving]
  - Oropharyngeal pain [Recovering/Resolving]
  - Swelling [Recovering/Resolving]

NARRATIVE: CASE EVENT DATE: 20210204
